FAERS Safety Report 6579705-2 (Version None)
Quarter: 2010Q1

REPORT INFORMATION
  Report Type: 
  Country: None (occurrence: None)
  Receive Date: 20100212
  Receipt Date: 20100205
  Transmission Date: 20100710
  Serious: Yes (Other)
  Sender: FDA-Public Use
  Company Number: US-SANOFI-AVENTIS-2010SA007602

PATIENT
  Sex: Female

DRUGS (1)
  1. LANTUS [Suspect]
     Indication: DIABETES MELLITUS
     Route: 058
     Dates: start: 20090601

REACTIONS (4)
  - ACROCHORDON [None]
  - ACROMEGALY [None]
  - PITUITARY TUMOUR RECURRENT [None]
  - WEIGHT INCREASED [None]
